FAERS Safety Report 25268314 (Version 1)
Quarter: 2025Q2

REPORT INFORMATION
  Report Type: Spontaneous
  Country: US (occurrence: None)
  Receive Date: 20250503
  Receipt Date: 20250503
  Transmission Date: 20250717
  Serious: Yes (Hospitalization)
  Sender: FDA-CTU
  Company Number: None

PATIENT
  Age: 59 Year
  Sex: Female
  Weight: 63.9 kg

DRUGS (10)
  1. RITUXAN [Suspect]
     Active Substance: RITUXIMAB
     Indication: Aplasia pure red cell
     Route: 042
     Dates: start: 20250408, end: 20250422
  2. FOLIC ACID [Concomitant]
     Active Substance: FOLIC ACID
  3. LEVOXYL [Concomitant]
     Active Substance: LEVOTHYROXINE SODIUM
  4. VOLTAREN [Concomitant]
     Active Substance: DICLOFENAC SODIUM
  5. PREDNISONE [Concomitant]
     Active Substance: PREDNISONE
  6. CLARITIN [Concomitant]
     Active Substance: LORATADINE
  7. TYLENOL [Concomitant]
     Active Substance: ACETAMINOPHEN
  8. IBUPROFEN [Concomitant]
     Active Substance: IBUPROFEN
  9. ZINC [Concomitant]
     Active Substance: ZINC
  10. VITAMIN D3 [Concomitant]
     Active Substance: CHOLECALCIFEROL

REACTIONS (5)
  - Ear pain [None]
  - Ear swelling [None]
  - Ear infection bacterial [None]
  - Restless legs syndrome [None]
  - Night sweats [None]

NARRATIVE: CASE EVENT DATE: 20250424
